FAERS Safety Report 14918462 (Version 3)
Quarter: 2018Q2

REPORT INFORMATION
  Report Type: Spontaneous
  Country: LT (occurrence: LT)
  Receive Date: 20180521
  Receipt Date: 20180611
  Transmission Date: 20180711
  Serious: Yes (Life-Threatening, Hospitalization)
  Sender: FDA-Public Use
  Company Number: LT-MYLANLABS-2018M1032243

PATIENT
  Age: 53 Year
  Sex: Female

DRUGS (19)
  1. DEXAMETHASONE. [Interacting]
     Active Substance: DEXAMETHASONE
     Indication: PREMEDICATION
     Dosage: 4 MG (8 TABLETS DAILY), DAILY
     Route: 048
     Dates: start: 2016
  2. ONDANSETRON [Interacting]
     Active Substance: ONDANSETRON
     Indication: PROPHYLAXIS OF NAUSEA AND VOMITING
     Dosage: 8 MG, DAILY
     Route: 048
     Dates: start: 2016
  3. CYANOCOBALAMIN. [Interacting]
     Active Substance: CYANOCOBALAMIN
     Indication: PREMEDICATION
     Dosage: 1000 MG, UNK
     Route: 042
  4. ALPRAZOLAM. [Interacting]
     Active Substance: ALPRAZOLAM
     Indication: ANXIETY DISORDER
     Dosage: 0.5 MG, DAILY (LONG-TERM USE)
     Route: 048
  5. ADRENALINE [Interacting]
     Active Substance: EPINEPHRINE
     Indication: CARDIO-RESPIRATORY ARREST
     Dosage: UNK
  6. CISPLATIN. [Interacting]
     Active Substance: CISPLATIN
     Dosage: UNK
     Dates: start: 201611, end: 2016
  7. ANGIOCELL [Interacting]
     Active Substance: SHARK CARTILAGE\SHARK, UNSPECIFIED
     Dosage: 8 ML, QD
     Route: 048
     Dates: start: 2016
  8. FENTANYL. [Interacting]
     Active Substance: FENTANYL
     Indication: PAIN MANAGEMENT
     Dosage: UNK, QD
     Route: 061
  9. FOLIC ACID. [Interacting]
     Active Substance: FOLIC ACID
     Indication: PREMEDICATION
     Dosage: 1000 MG, DAILY
     Route: 042
  10. TIANEPTINE SODIUM [Interacting]
     Active Substance: TIANEPTINE SODIUM
     Indication: PAIN MANAGEMENT
     Dosage: 12.5 MG, DAILY (LONG-TERM USE)
     Route: 048
  11. TRAMADOL. [Suspect]
     Active Substance: TRAMADOL
     Indication: PAIN MANAGEMENT
     Dosage: 100 MG, DAILY (LONG-TERM USE)
     Route: 048
  12. FENTANYL. [Interacting]
     Active Substance: FENTANYL
     Dosage: 75 MCG/ HR, LONG TERM USE UNK
  13. BETALOC [Interacting]
     Active Substance: METOPROLOL TARTRATE
     Indication: HYPERTENSION
     Dosage: 47.5 MG, DAILY (LONG-TERM USE)
     Route: 048
  14. MANNITOL. [Interacting]
     Active Substance: MANNITOL
     Indication: DRUG TOXICITY PROPHYLAXIS
     Dosage: 1000 ML, DAILY (10 PROC.)
     Route: 042
     Dates: start: 2016
  15. CISPLATIN. [Interacting]
     Active Substance: CISPLATIN
     Indication: PLEURAL MESOTHELIOMA
     Dosage: 150 MG, QD (150 MG, DAILY II CYCLE (AFTER 6 PREVIOUS CYCLES OF CISPLATIN AND PEMETREXED))
     Route: 042
     Dates: start: 2015
  16. PEMETREXED DISODIUM [Interacting]
     Active Substance: PEMETREXED DISODIUM
     Indication: PLEURAL MESOTHELIOMA
     Dosage: UNK, CYCLE
  17. ANGIOCELL [Interacting]
     Active Substance: SHARK CARTILAGE\SHARK, UNSPECIFIED
     Indication: PRODUCT USED FOR UNKNOWN INDICATION
     Dosage: 7.5 ML, QD
     Route: 048
     Dates: start: 2016
  18. APREPITANT. [Interacting]
     Active Substance: APREPITANT
     Indication: PROPHYLAXIS OF NAUSEA AND VOMITING
     Dosage: 125 MG, QD, DAILY
     Route: 048
     Dates: start: 2016
  19. TIANEPTINE SODIUM [Interacting]
     Active Substance: TIANEPTINE SODIUM
     Indication: DEPRESSION
     Dosage: 12.5 MG, QD (LONG TERM USE)

REACTIONS (4)
  - Underdose [Recovered/Resolved]
  - Circulatory collapse [Recovering/Resolving]
  - Drug interaction [Recovering/Resolving]
  - Cardio-respiratory arrest [Recovering/Resolving]

NARRATIVE: CASE EVENT DATE: 2017
